FAERS Safety Report 25982068 (Version 1)
Quarter: 2025Q4

REPORT INFORMATION
  Report Type: Report from Study
  Country: US (occurrence: US)
  Receive Date: 20251031
  Receipt Date: 20251031
  Transmission Date: 20260117
  Serious: Yes (Hospitalization)
  Sender: JOHNSON AND JOHNSON
  Company Number: US-JNJFOC-20251025139

PATIENT
  Age: 38 Year
  Sex: Female

DRUGS (1)
  1. SPRAVATO [Suspect]
     Active Substance: ESKETAMINE
     Indication: Depression
     Dosage: ^56 MG, RECENT ADMINISTERED DOSE^
     Route: 045
     Dates: start: 20251020, end: 20251020

REACTIONS (11)
  - Urinary retention [Not Recovered/Not Resolved]
  - Urticaria [Not Recovered/Not Resolved]
  - Pruritus [Not Recovered/Not Resolved]
  - Flushing [Not Recovered/Not Resolved]
  - Dry throat [Not Recovered/Not Resolved]
  - Hot flush [Not Recovered/Not Resolved]
  - Diplopia [Not Recovered/Not Resolved]
  - Dry mouth [Not Recovered/Not Resolved]
  - Eating disorder [Unknown]
  - Product dose omission issue [Unknown]
  - Physical examination abnormal [Unknown]

NARRATIVE: CASE EVENT DATE: 20251020
